FAERS Safety Report 20564482 (Version 1)
Quarter: 2022Q1

REPORT INFORMATION
  Report Type: Spontaneous
  Country: US (occurrence: US)
  Receive Date: 20220308
  Receipt Date: 20220308
  Transmission Date: 20220423
  Serious: No
  Sender: FDA-Public Use
  Company Number: US-AMGEN-USASP2022036465

PATIENT

DRUGS (5)
  1. NEULASTA [Suspect]
     Active Substance: PEGFILGRASTIM
     Indication: Product used for unknown indication
     Dosage: UNK
     Route: 065
  2. BRENTUXIMAB VEDOTIN [Concomitant]
     Active Substance: BRENTUXIMAB VEDOTIN
  3. DOXORUBICIN [Concomitant]
     Active Substance: DOXORUBICIN
  4. VINBLASTINE [Concomitant]
     Active Substance: VINBLASTINE
  5. DACARBAZINE [Concomitant]
     Active Substance: DACARBAZINE

REACTIONS (1)
  - Adverse event [Unknown]
